FAERS Safety Report 10675319 (Version 3)
Quarter: 2015Q1

REPORT INFORMATION
  Report Type: Spontaneous
  Country: AU (occurrence: AU)
  Receive Date: 20141224
  Receipt Date: 20150209
  Transmission Date: 20150720
  Serious: Yes (Other)
  Sender: FDA-Public Use
  Company Number: AU-ASTRAZENECA-2014SE93794

PATIENT
  Sex: Male

DRUGS (3)
  1. SYMBICORT [Suspect]
     Active Substance: BUDESONIDE\FORMOTEROL FUMARATE DIHYDRATE
     Indication: NO ADVERSE EVENT
     Dosage: 400/12 MCG TWO TIMES A DAY
     Route: 055
     Dates: start: 20141126, end: 20141203
  2. DOXYCYCLINE. [Concomitant]
     Active Substance: DOXYCYCLINE
     Indication: ANTI-INFECTIVE THERAPY
     Route: 048
     Dates: start: 20141126
  3. BRICANYL [Concomitant]
     Active Substance: TERBUTALINE SULFATE
     Indication: BRONCHIAL DISORDER
     Dosage: FOUR TIMES A DAY
     Route: 055
     Dates: start: 20141126

REACTIONS (2)
  - Condition aggravated [Unknown]
  - Drug dose omission [Unknown]

NARRATIVE: CASE EVENT DATE: 20141203
